FAERS Safety Report 10456050 (Version 4)
Quarter: 2015Q2

REPORT INFORMATION
  Report Type: Spontaneous
  Country: US (occurrence: None)
  Receive Date: 20140912
  Receipt Date: 20150506
  Transmission Date: 20150821
  Serious: Yes (Other)
  Sender: FDA-Public Use
  Company Number: ADR-2014-01653

PATIENT
  Sex: Female

DRUGS (6)
  1. BACLOFEN INTRATHECAL [Suspect]
     Active Substance: BACLOFEN
     Indication: MUSCLE SPASTICITY
     Dates: start: 20090601, end: 20090702
  2. CYPROHEPTADINE. [Suspect]
     Active Substance: CYPROHEPTADINE
  3. ORAL BACLOFEN [Suspect]
     Active Substance: BACLOFEN
     Indication: MUSCLE SPASTICITY
  4. PREVACID [Suspect]
     Active Substance: LANSOPRAZOLE
  5. PULMICORT TURBUHALER [Suspect]
     Active Substance: BUDESONIDE
  6. ALBUTEROL. [Suspect]
     Active Substance: ALBUTEROL

REACTIONS (5)
  - Patient-device incompatibility [None]
  - Implant site infection [None]
  - Pocket erosion [None]
  - Wound dehiscence [None]
  - Bacterial infection [None]
